FAERS Safety Report 4917899-2 (Version None)
Quarter: 2006Q1

REPORT INFORMATION
  Report Type: 
  Country: None (occurrence: None)
  Receive Date: 20060215
  Receipt Date: 20060206
  Transmission Date: 20060701
  Serious: Yes (Other)
  Sender: FDA-Public Use
  Company Number: 2006018179

PATIENT
  Age: 69 Year
  Sex: Female

DRUGS (4)
  1. CABERGOLINE [Suspect]
     Indication: PARKINSON'S DISEASE
     Dosage: 4 MG (1 D), ORAL
     Route: 048
     Dates: start: 20010226
  2. ZOLOFT [Concomitant]
  3. MADOPARK (BENSERAZIDE HYDROCHLORIDE, LEVODOPA) [Concomitant]
  4. TOLTERODINE TARTRATE [Concomitant]

REACTIONS (7)
  - AORTIC VALVE INCOMPETENCE [None]
  - CARDIAC MURMUR [None]
  - MITRAL VALVE INCOMPETENCE [None]
  - NIGHTMARE [None]
  - PULMONARY HYPERTENSION [None]
  - TRICUSPID VALVE INCOMPETENCE [None]
  - VISUAL DISTURBANCE [None]
